FAERS Safety Report 9421772 (Version 1)
Quarter: 2013Q3

REPORT INFORMATION
  Report Type: Spontaneous
  Country: US (occurrence: US)
  Receive Date: 20130726
  Receipt Date: 20130726
  Transmission Date: 20140515
  Serious: No
  Sender: FDA-Public Use
  Company Number: US-B.I. PHARMACEUTICALS,INC./RIDGEFIELD-2013-BI-21679BP

PATIENT
  Sex: Female
  Weight: 100 kg

DRUGS (14)
  1. MIRAPEX [Suspect]
     Indication: RESTLESS LEGS SYNDROME
     Dosage: 3 MG
     Route: 048
     Dates: start: 2011
  2. SINGULAIR [Concomitant]
     Indication: ASTHMA
     Dosage: 10 MG
     Route: 048
  3. PLAQUENIL [Concomitant]
     Indication: ARTHRITIS
     Dosage: 200 MG
     Route: 048
  4. AMRIX [Concomitant]
     Indication: FIBROMYALGIA
     Dosage: 15 MG
     Route: 048
     Dates: start: 2011
  5. SEROQUEL [Concomitant]
     Indication: FIBROMYALGIA
     Dosage: 50 MG
     Route: 048
  6. SEROQUEL [Concomitant]
     Indication: SLEEP DISORDER
  7. LIMBREL [Concomitant]
     Indication: ARTHRITIS
     Dosage: STRENGTH: 500/50 MG; DAILY DOSE: 1000/100 MG
     Route: 048
     Dates: start: 2010
  8. ROZEREM [Concomitant]
     Indication: SLEEP DISORDER
     Route: 048
  9. NORCO [Concomitant]
     Indication: PAIN
     Dosage: STRENGTH: 10/325
     Route: 048
  10. MORPHINE SULFATE ER [Concomitant]
     Indication: PAIN
     Route: 048
  11. CYMBALTA [Concomitant]
     Indication: FIBROMYALGIA
     Dosage: 60 MG
     Route: 048
     Dates: start: 2009
  12. TOPROL XL [Concomitant]
     Indication: HYPERTENSION
     Dosage: 50 MG
     Route: 048
     Dates: start: 2012
  13. ACTOS [Concomitant]
     Indication: DIABETES MELLITUS
     Dosage: 30 MG
     Route: 048
     Dates: start: 2012
  14. AMLODIPINE [Concomitant]
     Indication: HYPERTENSION
     Dosage: 10 MG
     Route: 048
     Dates: start: 2012

REACTIONS (10)
  - Off label use [Not Recovered/Not Resolved]
  - Oedema peripheral [Not Recovered/Not Resolved]
  - Local swelling [Not Recovered/Not Resolved]
  - Local swelling [Not Recovered/Not Resolved]
  - Fatigue [Not Recovered/Not Resolved]
  - Eyelid oedema [Not Recovered/Not Resolved]
  - Dry mouth [Not Recovered/Not Resolved]
  - Dry throat [Not Recovered/Not Resolved]
  - Weight increased [Not Recovered/Not Resolved]
  - Oedema peripheral [Not Recovered/Not Resolved]
